FAERS Safety Report 9669463 (Version 2)
Quarter: 2013Q4

REPORT INFORMATION
  Report Type: Spontaneous
  Country: JP (occurrence: JP)
  Receive Date: 20131105
  Receipt Date: 20131212
  Transmission Date: 20140711
  Serious: Yes (Other)
  Sender: FDA-Public Use
  Company Number: JP-PFIZER INC-2013310852

PATIENT
  Sex: Female

DRUGS (1)
  1. XALATAN [Suspect]
     Dosage: 1 GTT, 1X/DAY
     Route: 047

REACTIONS (2)
  - Foetal death [Unknown]
  - Benign hydatidiform mole [Unknown]
